FAERS Safety Report 9100526 (Version 1)
Quarter: 2013Q1

REPORT INFORMATION
  Report Type: Spontaneous
  Country: SE (occurrence: SE)
  Receive Date: 20130215
  Receipt Date: 20130215
  Transmission Date: 20140127
  Serious: Yes (Other)
  Sender: FDA-Public Use
  Company Number: SE-PFIZER INC-2013057255

PATIENT
  Age: 68 Year
  Sex: Male

DRUGS (2)
  1. VIAGRA [Suspect]
     Dosage: SINGLE DOSE
     Dates: start: 20121215, end: 20121215
  2. TRIMONIL [Suspect]
     Indication: TEMPORAL LOBE EPILEPSY
     Dosage: UNK

REACTIONS (1)
  - Retinal vein thrombosis [Unknown]
